FAERS Safety Report 10253498 (Version 4)
Quarter: 2014Q3

REPORT INFORMATION
  Report Type: Spontaneous
  Country: PA (occurrence: PA)
  Receive Date: 20140623
  Receipt Date: 20140731
  Transmission Date: 20150326
  Serious: Yes (Other)
  Sender: FDA-Public Use
  Company Number: PHHY2014PA077392

PATIENT
  Age: 55 Year
  Sex: Female
  Weight: 53 kg

DRUGS (5)
  1. CALCIUM + VITAMIN D [Concomitant]
     Active Substance: CALCIUM\VITAMIN D
     Dosage: 1 DF, DAILY
     Route: 048
  2. VITAMIN K [Concomitant]
     Active Substance: PHYTONADIONE
     Dosage: 1 DF, DAILY
     Route: 048
  3. ACLASTA [Suspect]
     Active Substance: ZOLEDRONIC ACID
     Dosage: 1 DF (VIAL), UNK
     Route: 042
     Dates: start: 20140620
  4. ACLASTA [Suspect]
     Active Substance: ZOLEDRONIC ACID
     Indication: OSTEOPOROSIS
     Dosage: 1 DF (VIAL), ANUALLY
     Route: 042
     Dates: start: 201306
  5. CHLOROPHYLL [Concomitant]
     Dosage: UNK UKN, UNK

REACTIONS (13)
  - Hyperthyroidism [Unknown]
  - Alopecia [Recovered/Resolved]
  - Tachycardia [Unknown]
  - Phlebitis [Recovered/Resolved]
  - Muscle contracture [Unknown]
  - Myalgia [Recovered/Resolved]
  - Pain [Unknown]
  - Fatigue [Recovered/Resolved]
  - Blood parathyroid hormone abnormal [Recovered/Resolved]
  - Thyroiditis [Recovered/Resolved]
  - Hypocalcaemia [Recovered/Resolved]
  - Burning sensation [Unknown]
  - Pain in extremity [Unknown]

NARRATIVE: CASE EVENT DATE: 201306
